FAERS Safety Report 6250863-2 (Version None)
Quarter: 2009Q2

REPORT INFORMATION
  Report Type: 
  Country: None (occurrence: None)
  Receive Date: 20090626
  Receipt Date: 20090611
  Transmission Date: 20091009
  Serious: Yes (Death)
  Sender: FDA-Public Use
  Company Number: GB-DEXPHARM-20090860

PATIENT
  Sex: Female

DRUGS (5)
  1. DICLOFENAC ACTIVE SUBSTANCES : DICLOFENAC [Suspect]
     Indication: ARTHRALGIA
     Dosage: DOSE: 2 DF DOSAGE FORM CUMULATIVE DOSE: 2 DF DOSAGE FORM
  2. GLYCERYL TRINITRATE [Suspect]
     Indication: ANGINA PECTORIS
  3. PARACETAMOL [Concomitant]
  4. RAMIPRIL [Concomitant]
  5. ALBUTEROL [Concomitant]

REACTIONS (3)
  - ANAPHYLACTIC REACTION [None]
  - CARDIAC ARREST [None]
  - COLITIS ISCHAEMIC [None]
